FAERS Safety Report 5398270-9 (Version None)
Quarter: 2007Q3

REPORT INFORMATION
  Report Type: 
  Country: None (occurrence: None)
  Receive Date: 20070726
  Receipt Date: 20070717
  Transmission Date: 20080115
  Serious: Yes (Other)
  Sender: FDA-Public Use
  Company Number: CH-PFIZER INC-2007060596

PATIENT
  Age: 53 Year
  Sex: Male

DRUGS (8)
  1. VORICONAZOLE [Suspect]
     Route: 048
  2. CEFEPIME [Concomitant]
  3. IMIPENEM [Concomitant]
  4. LEVOFLOXACIN [Concomitant]
  5. TEICOPLANIN [Concomitant]
  6. FLUCONAZOLE [Concomitant]
  7. CEFEPIME [Concomitant]
  8. METRONIDAZOLE HCL [Concomitant]

REACTIONS (3)
  - BRONCHOPULMONARY ASPERGILLOSIS [None]
  - FEBRILE NEUTROPENIA [None]
  - STAPHYLOCOCCAL INFECTION [None]
